FAERS Safety Report 5942612-X (Version None)
Quarter: 2008Q4

REPORT INFORMATION
  Report Type: 
  Country: None (occurrence: None)
  Receive Date: 20081103
  Receipt Date: 20081021
  Transmission Date: 20090506
  Serious: Yes (Hospitalization)
  Sender: FDA-Public Use
  Company Number: 8038629

PATIENT
  Age: 61 Year
  Sex: Male

DRUGS (5)
  1. KEPPRA [Suspect]
     Indication: CONVULSION
     Dosage: 500 MG 2/D PO
     Route: 048
     Dates: start: 20080815
  2. PHENYTOIN [Suspect]
     Indication: CONVULSION
     Dosage: 200 MG 2/D IV
     Route: 042
     Dates: start: 20080810, end: 20080831
  3. AMOXICILLIN + CLAVULANATE POTASSIUM [Concomitant]
  4. PANTOPRAZOLE SODIUM [Concomitant]
  5. TAZOCIN [Concomitant]

REACTIONS (3)
  - CONVULSION [None]
  - DRUG LEVEL INCREASED [None]
  - NEUTROPENIA [None]
